FAERS Safety Report 8572212-7 (Version None)
Quarter: 2012Q3

REPORT INFORMATION
  Report Type: 
  Country: None (occurrence: None)
  Receive Date: 20120806
  Receipt Date: 20120730
  Transmission Date: 20120928
  Serious: Yes (Death)
  Sender: FDA-Public Use
  Company Number: JP-ASTELLAS-2012JP007188

PATIENT
  Age: 54 Year
  Sex: Male

DRUGS (18)
  1. METHOTREXATE [Concomitant]
     Route: 065
  2. ASPARTATE CALCIUM [Concomitant]
     Route: 048
  3. FLUTICASONE PROPIONATE [Concomitant]
     Route: 065
  4. SPIRIVA [Concomitant]
     Route: 055
  5. ISONIAZID [Concomitant]
     Route: 065
  6. RALOXIFENE HYDROCHLORIDE [Concomitant]
     Route: 048
  7. CROMOLYN SODIUM [Concomitant]
     Route: 065
  8. BROMHEXINE HYDROCHLORIDE [Concomitant]
     Route: 065
  9. PREDNISOLONE [Concomitant]
     Route: 065
  10. ALFACALCIDOL [Concomitant]
     Route: 048
  11. HUMIRA [Concomitant]
     Route: 058
  12. ALENDRONATE SODIUM [Concomitant]
     Route: 065
  13. SULFASALAZINE [Concomitant]
     Route: 065
  14. PROGRAF [Suspect]
     Indication: RHEUMATOID ARTHRITIS
     Route: 065
  15. TEPRENONE [Concomitant]
     Route: 048
  16. MECOBALAMIN [Concomitant]
     Route: 065
  17. CLARITHROMYCIN [Concomitant]
     Route: 048
  18. AMBROXOL HYDROCHLORIDE [Concomitant]
     Route: 048

REACTIONS (1)
  - HEPATITIS B [None]
